FAERS Safety Report 8433355-1 (Version None)
Quarter: 2012Q2

REPORT INFORMATION
  Report Type: 
  Country: None (occurrence: None)
  Receive Date: 20120613
  Receipt Date: 20120501
  Transmission Date: 20120825
  Serious: Yes (Other)
  Sender: FDA-Public Use
  Company Number: CA-BAYER-2012-042306

PATIENT
  Age: 71 Year
  Sex: Male

DRUGS (2)
  1. AVELOX [Suspect]
     Dosage: UNK
     Dates: start: 20120425
  2. BETASERON [Suspect]
     Dosage: 0.25 MG, UNK
     Dates: start: 19880101, end: 20120401

REACTIONS (5)
  - MOBILITY DECREASED [None]
  - GAIT DISTURBANCE [None]
  - INFLUENZA LIKE ILLNESS [None]
  - DRUG INEFFECTIVE [None]
  - MULTIPLE SCLEROSIS RELAPSE [None]
